FAERS Safety Report 26012641 (Version 1)
Quarter: 2025Q4

REPORT INFORMATION
  Report Type: Spontaneous
  Country: US (occurrence: US)
  Receive Date: 20251107
  Receipt Date: 20251107
  Transmission Date: 20260118
  Serious: Yes (Hospitalization, Other)
  Sender: ALEMBIC
  Company Number: US-ALEMBIC PHARMACUETICALS LIMITED-2025SCAL001458

PATIENT

DRUGS (1)
  1. AMANTADINE HYDROCHLORIDE [Suspect]
     Active Substance: AMANTADINE HYDROCHLORIDE
     Indication: Depressed level of consciousness
     Dosage: 100 MILLIGRAM, BID
     Route: 065

REACTIONS (6)
  - Neurotoxicity [Recovering/Resolving]
  - Mental status changes [Recovering/Resolving]
  - Myoclonus [Recovering/Resolving]
  - Drug level increased [Recovering/Resolving]
  - Agitation [Recovering/Resolving]
  - Tremor [Recovering/Resolving]
